FAERS Safety Report 7105402-0 (Version None)
Quarter: 2010Q4

REPORT INFORMATION
  Report Type: 
  Country: None (occurrence: None)
  Receive Date: 20101116
  Receipt Date: 20101101
  Transmission Date: 20110411
  Serious: Yes (Other)
  Sender: FDA-Public Use
  Company Number: US-ELI_LILLY_AND_COMPANY-US201011000367

PATIENT
  Age: 56 Year
  Sex: Male

DRUGS (2)
  1. GEMCITABINE HCL [Suspect]
     Indication: ADENOCARCINOMA PANCREAS
     Dosage: 750 MG/M2, OTHER
     Route: 042
     Dates: start: 20100909
  2. OTHER PHARMA COMPANY INV DRUG [Suspect]
     Indication: ADENOCARCINOMA PANCREAS
     Dosage: 154 MG/M2, OTHER
     Route: 042
     Dates: start: 20100909

REACTIONS (2)
  - HYPOTENSION [None]
  - SYNCOPE [None]
